FAERS Safety Report 6459976-3 (Version None)
Quarter: 2009Q4

REPORT INFORMATION
  Report Type: 
  Country: None (occurrence: None)
  Receive Date: 20091129
  Receipt Date: 20091117
  Transmission Date: 20100525
  Serious: Yes (Hospitalization)
  Sender: FDA-Public Use
  Company Number: PHHO2009JP14338

PATIENT
  Sex: Female
  Weight: 60 kg

DRUGS (17)
  1. EXELON [Suspect]
     Indication: DEMENTIA ALZHEIMER'S TYPE
     Dosage: 2.5CM2
     Route: 062
     Dates: start: 20090227, end: 20090326
  2. EXELON [Suspect]
     Dosage: 5CM2
     Route: 062
     Dates: start: 20090327, end: 20090423
  3. EXELON [Suspect]
     Dosage: 7.5CM2
     Route: 062
     Dates: start: 20090424, end: 20090521
  4. EXELON [Suspect]
     Dosage: 10CM2
     Route: 062
     Dates: start: 20090522, end: 20091113
  5. VESICARE [Concomitant]
     Indication: MICTURITION URGENCY
  6. APONOL [Concomitant]
     Indication: LACUNAR INFARCTION
  7. MECOBALAMIN [Concomitant]
     Indication: NEUROPATHY PERIPHERAL
  8. ALINAMIN F [Concomitant]
     Indication: NEUROPATHY PERIPHERAL
  9. ASPARA-CA [Concomitant]
     Indication: OSTEOPOROSIS
  10. SERMION [Concomitant]
     Indication: LACUNAR INFARCTION
  11. GRAMALIL [Concomitant]
     Indication: DEMENTIA ALZHEIMER'S TYPE
  12. LIPODOWN ASAHIKASEI [Concomitant]
     Indication: HYPERLIPIDAEMIA
  13. YOKUKAN-SAN [Concomitant]
     Indication: DEMENTIA ALZHEIMER'S TYPE
  14. DEPAS [Concomitant]
     Indication: DEPRESSION
  15. CEREKINON [Concomitant]
     Indication: ENTEROCOLITIS
  16. MIYA-BM [Concomitant]
     Indication: ENTEROCOLITIS
  17. APOLAKETE [Concomitant]
     Indication: POLLAKIURIA

REACTIONS (1)
  - BREAST CANCER [None]
